FAERS Safety Report 8975748 (Version 2)
Quarter: 2012Q4

REPORT INFORMATION
  Report Type: 
  Country: IL (occurrence: IL)
  Receive Date: 20121219
  Receipt Date: 20121224
  Transmission Date: 20130627
  Serious: Yes (Death, Hospitalization)
  Sender: FDA-Public Use
  Company Number: IL-ROCHE-1164941

PATIENT
  Age: 29 Year
  Sex: Female

DRUGS (1)
  1. BEVACIZUMAB [Suspect]
     Indication: CERVIX CARCINOMA
     Route: 065
     Dates: start: 20121114

REACTIONS (2)
  - Nervous system disorder [Fatal]
  - Gastrointestinal perforation [Unknown]
